FAERS Safety Report 6414988-0 (Version None)
Quarter: 2009Q4

REPORT INFORMATION
  Report Type: 
  Country: None (occurrence: None)
  Receive Date: 20091026
  Receipt Date: 20090715
  Transmission Date: 20100525
  Serious: No
  Sender: FDA-Public Use
  Company Number: US-ABBOTT-09P-163-0585973-00

PATIENT
  Sex: Male

DRUGS (3)
  1. LUPRON DEPOT [Suspect]
     Indication: PROSTATE CANCER
     Dates: start: 20070201, end: 20080701
  2. LUPRON DEPOT [Suspect]
     Dates: start: 20090301, end: 20090301
  3. DEGARELIX [Suspect]
     Indication: PROSTATE CANCER
     Dates: start: 20090709, end: 20090709

REACTIONS (5)
  - ABDOMINAL PAIN [None]
  - FATIGUE [None]
  - MUSCLE SPASMS [None]
  - MUSCULOSKELETAL PAIN [None]
  - PROSTATIC SPECIFIC ANTIGEN INCREASED [None]
